FAERS Safety Report 6009142-0 (Version None)
Quarter: 2008Q4

REPORT INFORMATION
  Report Type: 
  Country: None (occurrence: None)
  Receive Date: 20081216
  Receipt Date: 20081201
  Transmission Date: 20090506
  Serious: Yes (Hospitalization, Other)
  Sender: FDA-Public Use
  Company Number: 2008S1018502

PATIENT
  Age: 48 Year
  Sex: Female
  Weight: 79.4248 kg

DRUGS (10)
  1. HYDROCODONE BITARTRATE + ACETAMINOPHEN [Suspect]
     Indication: BACK PAIN
     Dosage: 1 DF; 4 TIMES A DAY; ORAL
     Route: 048
     Dates: start: 19980101, end: 20071101
  2. HYDROCODONE BITARTRATE + ACETAMINOPHEN [Suspect]
     Indication: MUSCULOSKELETAL PAIN
     Dosage: 1 DF; 4 TIMES A DAY; ORAL
     Route: 048
     Dates: start: 19980101, end: 20071101
  3. HYDROCODONE BITARTRATE + ACETAMINOPHEN [Suspect]
     Indication: PAIN IN EXTREMITY
     Dosage: 1 DF; 4 TIMES A DAY; ORAL
     Route: 048
     Dates: start: 19980101, end: 20071101
  4. ALPRAZOLAM [Suspect]
     Indication: ANXIETY
     Dosage: 3 MG; DAILY; ORAL
     Route: 048
     Dates: start: 19980101
  5. FENTANYL TRANSDERMAL SYSTEM [Suspect]
     Indication: BACK PAIN
     Dosage: 75 UG; EVERY HOUR; TRANSDERMAL
     Route: 062
     Dates: start: 20070701, end: 20071030
  6. FENTANYL TRANSDERMAL SYSTEM [Suspect]
     Indication: MUSCULOSKELETAL PAIN
     Dosage: 75 UG; EVERY HOUR; TRANSDERMAL
     Route: 062
     Dates: start: 20070701, end: 20071030
  7. FENTANYL TRANSDERMAL SYSTEM [Suspect]
     Indication: PAIN IN EXTREMITY
     Dosage: 75 UG; EVERY HOUR; TRANSDERMAL
     Route: 062
     Dates: start: 20070701, end: 20071030
  8. SOMA [Concomitant]
  9. SEROQUEL [Concomitant]
  10. EFFEXOR [Concomitant]

REACTIONS (8)
  - AGGRESSION [None]
  - AMNESIA [None]
  - CEREBROVASCULAR ACCIDENT [None]
  - DEVICE FAILURE [None]
  - FALL [None]
  - OVERDOSE [None]
  - SUICIDE ATTEMPT [None]
  - TREATMENT NONCOMPLIANCE [None]
